FAERS Safety Report 23804354 (Version 1)
Quarter: 2024Q2

REPORT INFORMATION
  Report Type: Spontaneous
  Country: US (occurrence: None)
  Receive Date: 20240501
  Receipt Date: 20240501
  Transmission Date: 20240716
  Serious: Yes (Hospitalization)
  Sender: FDA-Public Use
  Company Number: None

PATIENT
  Age: 62 Year
  Sex: Male

DRUGS (1)
  1. APIXABAN [Suspect]
     Active Substance: APIXABAN
     Indication: Atrial fibrillation
     Dates: start: 20211001, end: 20231113

REACTIONS (8)
  - Gastrointestinal haemorrhage [None]
  - Gastritis [None]
  - Acute kidney injury [None]
  - Liver disorder [None]
  - International normalised ratio increased [None]
  - Portal hypertension [None]
  - Haemorrhoidal haemorrhage [None]
  - Therapy interrupted [None]

NARRATIVE: CASE EVENT DATE: 20230828
